FAERS Safety Report 5359299-X (Version None)
Quarter: 2007Q2

REPORT INFORMATION
  Report Type: 
  Country: None (occurrence: None)
  Receive Date: 20070615
  Receipt Date: 20070612
  Transmission Date: 20071010
  Serious: Yes (Hospitalization)
  Sender: FDA-Public Use
  Company Number: US-GENENTECH-242308

PATIENT
  Age: 42 Year
  Sex: Female

DRUGS (5)
  1. BEVACIZUMAB [Suspect]
     Indication: NON-SMALL CELL LUNG CANCER
     Dosage: 10 MG/KG, QOW
     Route: 042
     Dates: start: 20070423, end: 20070521
  2. ERLOTINIB [Suspect]
     Indication: NON-SMALL CELL LUNG CANCER
     Dosage: 150 MG, UNK
     Route: 048
     Dates: start: 20070423, end: 20070521
  3. TAXOL [Suspect]
     Indication: NON-SMALL CELL LUNG CANCER
     Dosage: 45 MG/M2, 1/WEEK
     Route: 042
     Dates: start: 20070423, end: 20070521
  4. CARBOPLATIN [Suspect]
     Indication: NON-SMALL CELL LUNG CANCER
     Dosage: 2 AUC, 1/WEEK
     Route: 042
     Dates: start: 20070423, end: 20070521
  5. RADIATION THERAPY [Suspect]
     Indication: NON-SMALL CELL LUNG CANCER
     Dates: start: 20070423, end: 20070521

REACTIONS (2)
  - INTERSTITIAL LUNG DISEASE [None]
  - OESOPHAGITIS [None]
